FAERS Safety Report 15309372 (Version 1)
Quarter: 2018Q3

REPORT INFORMATION
  Report Type: Spontaneous
  Country: US (occurrence: GB)
  Receive Date: 20180823
  Receipt Date: 20180823
  Transmission Date: 20181010
  Serious: No
  Sender: FDA-Public Use
  Company Number: US-ACCORD-062526

PATIENT
  Age: 74 Year
  Sex: Female
  Weight: 37.65 kg

DRUGS (2)
  1. LEVOTHYROXINE. [Concomitant]
     Active Substance: LEVOTHYROXINE
  2. ANASTROZOLE. [Suspect]
     Active Substance: ANASTROZOLE
     Indication: INTRADUCTAL PROLIFERATIVE BREAST LESION
     Dosage: IN BETWEEN JAN?2016 TO START OF FEB?2016 DRUG STARTED QD
     Route: 048
     Dates: start: 2016

REACTIONS (1)
  - Trigger finger [Recovering/Resolving]

NARRATIVE: CASE EVENT DATE: 2017
